FAERS Safety Report 21064344 (Version 1)
Quarter: 2022Q3

REPORT INFORMATION
  Report Type: Spontaneous
  Country: CA (occurrence: CA)
  Receive Date: 20220711
  Receipt Date: 20220711
  Transmission Date: 20221026
  Serious: Yes (Hospitalization)
  Sender: FDA-Public Use
  Company Number: CA-BAYER-2022A091309

PATIENT
  Age: 52 Year
  Sex: Female

DRUGS (40)
  1. CIPRO [Suspect]
     Active Substance: CIPROFLOXACIN HYDROCHLORIDE
  2. DIVALPROEX SODIUM [Suspect]
     Active Substance: DIVALPROEX SODIUM
     Indication: Product used for unknown indication
  3. TRAZODONE [Suspect]
     Active Substance: TRAZODONE HYDROCHLORIDE
     Indication: Depression
  4. TEGRETOL [Suspect]
     Active Substance: CARBAMAZEPINE
     Indication: Hypomania
  5. SINGULAIR [Suspect]
     Active Substance: MONTELUKAST SODIUM
     Indication: Product used for unknown indication
  6. MOXIFLOXACIN HYDROCHLORIDE [Suspect]
     Active Substance: MOXIFLOXACIN HYDROCHLORIDE
     Indication: Product used for unknown indication
  7. BREO ELLIPTA [Suspect]
     Active Substance: FLUTICASONE FUROATE\VILANTEROL TRIFENATATE
     Indication: Product used for unknown indication
  8. ATROVENT [Suspect]
     Active Substance: IPRATROPIUM BROMIDE
     Indication: Product used for unknown indication
  9. OMNARIS [Suspect]
     Active Substance: CICLESONIDE
     Indication: Product used for unknown indication
  10. BUDESONIDE [Suspect]
     Active Substance: BUDESONIDE
     Indication: Product used for unknown indication
  11. DIAZEPAM [Suspect]
     Active Substance: DIAZEPAM
     Indication: Depression
  12. QUETIAPINE FUMARATE [Suspect]
     Active Substance: QUETIAPINE FUMARATE
     Indication: Psychotic disorder
  13. UMECLIDINIUM BROMIDE [Suspect]
     Active Substance: UMECLIDINIUM BROMIDE
     Indication: Product used for unknown indication
  14. ACRIVASTINE [Concomitant]
     Active Substance: ACRIVASTINE
     Indication: Product used for unknown indication
  15. CALCIUM CARBONATE [Concomitant]
     Active Substance: CALCIUM CARBONATE
  16. CHLORAL HYDRATE [Concomitant]
     Active Substance: CHLORAL HYDRATE
  17. IMODIUM [Concomitant]
     Active Substance: LOPERAMIDE HYDROCHLORIDE
  18. LACTULOSE [Concomitant]
     Active Substance: LACTULOSE
  19. LITHIUM [Concomitant]
     Active Substance: LITHIUM
  20. NYSTATIN [Concomitant]
     Active Substance: NYSTATIN
  21. ENFUVIRTIDE [Concomitant]
     Active Substance: ENFUVIRTIDE
     Indication: Product used for unknown indication
  22. APTIVUS [Concomitant]
     Active Substance: TIPRANAVIR
     Indication: HIV infection
  23. LAMIVUDINE [Concomitant]
     Active Substance: LAMIVUDINE
  24. MEPOLIZUMAB [Suspect]
     Active Substance: MEPOLIZUMAB
  25. GLYCOPYRROLATE [Suspect]
     Active Substance: GLYCOPYRROLATE
  26. CLONAZEPAM [Suspect]
     Active Substance: CLONAZEPAM
     Indication: Hypomania
  27. BISACODYL [Concomitant]
     Active Substance: BISACODYL
  28. NASONEX [Suspect]
     Active Substance: MOMETASONE FUROATE
  29. SPIRIVA [Suspect]
     Active Substance: TIOTROPIUM BROMIDE MONOHYDRATE
  30. ZENHALE [Suspect]
     Active Substance: FORMOTEROL FUMARATE\MOMETASONE FUROATE
  31. KALETRA [Concomitant]
     Active Substance: LOPINAVIR\RITONAVIR
  32. PROCYCLIDINE HYDROCHLORIDE [Suspect]
     Active Substance: PROCYCLIDINE HYDROCHLORIDE
  33. OLANZAPINE [Suspect]
     Active Substance: OLANZAPINE
  34. PREDNISONE [Suspect]
     Active Substance: PREDNISONE
  35. ACLIDINIUM BROMIDE [Suspect]
     Active Substance: ACLIDINIUM BROMIDE
  36. GLYCOPYRRONIUM\INDACATEROL [Suspect]
     Active Substance: GLYCOPYRRONIUM\INDACATEROL
  37. ALBUTEROL [Suspect]
     Active Substance: ALBUTEROL
  38. ENFUVIRTIDE [Concomitant]
     Active Substance: ENFUVIRTIDE
  39. ABACAVIR SULFATE [Concomitant]
     Active Substance: ABACAVIR SULFATE
  40. ACETAMINOPHEN [Concomitant]
     Active Substance: ACETAMINOPHEN

REACTIONS (24)
  - Schizophrenia [None]
  - Blood bilirubin increased [None]
  - Vomiting [None]
  - Asthma-chronic obstructive pulmonary disease overlap syndrome [None]
  - Chronic obstructive pulmonary disease [None]
  - Bronchiectasis [None]
  - Cardiac murmur [None]
  - Gastrooesophageal reflux disease [None]
  - Lung neoplasm malignant [None]
  - Nasal polyps [None]
  - Oedema peripheral [None]
  - Rhinitis allergic [None]
  - Sarcoidosis [None]
  - Total lung capacity increased [None]
  - Wheezing [None]
  - Cholelithiasis [None]
  - Condition aggravated [None]
  - Hepatic enzyme increased [None]
  - Hepatotoxicity [None]
  - Hypomania [None]
  - Jaundice cholestatic [None]
  - Nausea [None]
  - Pneumonia [None]
  - Psychotic disorder [None]
